FAERS Safety Report 5958631-3 (Version None)
Quarter: 2008Q4

REPORT INFORMATION
  Report Type: 
  Country: None (occurrence: None)
  Receive Date: 20081110
  Receipt Date: 20081012
  Transmission Date: 20090506
  Serious: Yes (Death)
  Sender: FDA-Public Use
  Company Number: CHPA2008US17970

PATIENT
  Age: 31 Year
  Sex: Male

DRUGS (4)
  1. ACETYLSALICYLIC ACID SRT [Suspect]
  2. COCAINE (COCAINE) [Suspect]
  3. ETHANOL (ETHANOL) [Suspect]
  4. CYCLOBENZAPRINE [Suspect]

REACTIONS (1)
  - DRUG ABUSE [None]
